FAERS Safety Report 7722246-7 (Version None)
Quarter: 2011Q3

REPORT INFORMATION
  Report Type: 
  Country: None (occurrence: None)
  Receive Date: 20110831
  Receipt Date: 20110823
  Transmission Date: 20111222
  Serious: Yes (Other)
  Sender: FDA-Public Use
  Company Number: US-ELI_LILLY_AND_COMPANY-US201106006410

PATIENT
  Sex: Female

DRUGS (7)
  1. BYETTA [Suspect]
     Indication: TYPE 2 DIABETES MELLITUS
     Dosage: 5 UG, SINGLE
     Route: 058
     Dates: start: 20110621, end: 20110622
  2. ASPIRIN [Concomitant]
     Dosage: 81 MG, QD
     Route: 048
  3. METFORMIN HCL [Concomitant]
     Indication: TYPE 2 DIABETES MELLITUS
     Dosage: 1000 MG, QD
     Route: 048
  4. LORATADINE [Concomitant]
     Dosage: 10 MG, BID
  5. PSEUDOEPHEDRINE HCL [Concomitant]
     Dosage: 30 MG, QID
  6. CRESTOR [Concomitant]
     Dosage: 10 MG, QD
     Route: 048
  7. BUPROPION HCL [Concomitant]
     Dosage: 300 MG, UNK
     Route: 048

REACTIONS (3)
  - SWELLING [None]
  - PHARYNGEAL OEDEMA [None]
  - EYE SWELLING [None]
